FAERS Safety Report 4539370-2 (Version None)
Quarter: 2004Q4

REPORT INFORMATION
  Report Type: 
  Country: None (occurrence: None)
  Receive Date: 20041222
  Receipt Date: 20041208
  Transmission Date: 20050328
  Serious: Yes (Hospitalization)
  Sender: FDA-Public Use
  Company Number: L04-AUS-08170-01

PATIENT
  Age: 80 Year
  Sex: Female
  Weight: 66 kg

DRUGS (13)
  1. CARBAMAZEPINE [Suspect]
     Dosage: 200 MG BID PO
     Route: 048
  2. ACETAMINOPHEN [Suspect]
     Indication: MUSCULOSKELETAL PAIN
     Dosage: 1000 MG QID
  3. ACETAMINOPHEN [Suspect]
     Dosage: 500 MG QW
  4. PROCHLORPERAZINE [Concomitant]
  5. METFORMIN HCL [Concomitant]
  6. ATORVASTATIN [Concomitant]
  7. GLYCERYL TRINITRATE PATCH [Concomitant]
  8. DIPYRIDAMOLE 200 MG/ASPIRIN [Concomitant]
  9. ATENOLOL [Concomitant]
  10. OXAZEPAM [Concomitant]
  11. FELODIPINE [Concomitant]
  12. RAMIPRIL [Concomitant]
  13. VENLAFAXINE HCL [Concomitant]

REACTIONS (16)
  - ALANINE AMINOTRANSFERASE INCREASED [None]
  - ANTINUCLEAR ANTIBODY POSITIVE [None]
  - ASCITES [None]
  - ASPARTATE AMINOTRANSFERASE INCREASED [None]
  - BLOOD ALKALINE PHOSPHATASE INCREASED [None]
  - BLOOD BILIRUBIN INCREASED [None]
  - CONFUSIONAL STATE [None]
  - DEMENTIA [None]
  - DRUG INTERACTION [None]
  - FALL [None]
  - GAMMA-GLUTAMYLTRANSFERASE INCREASED [None]
  - HEPATIC FUNCTION ABNORMAL [None]
  - HEPATOTOXICITY [None]
  - INTERNATIONAL NORMALISED RATIO INCREASED [None]
  - LETHARGY [None]
  - MUSCULOSKELETAL PAIN [None]
